FAERS Safety Report 4272839-7 (Version None)
Quarter: 2004Q1

REPORT INFORMATION
  Report Type: 
  Country: None (occurrence: None)
  Receive Date: 20040114
  Receipt Date: 20040106
  Transmission Date: 20041129
  Serious: Yes (Hospitalization, Disabling, Other)
  Sender: FDA-Public Use
  Company Number: HQ4024803SEP2002

PATIENT
  Age: 75 Year
  Sex: Male

DRUGS (13)
  1. MYLOTARG [Suspect]
     Indication: ACUTE MYELOID LEUKAEMIA
     Dosage: PATIENT DID NOT RECEIVE MYLOTARG
  2. CYCLOPHOSPHAMIDE [Suspect]
     Indication: ACUTE MYELOID LEUKAEMIA
     Dosage: 570 MG DAYS 1-3 (1710 MG TOTAL), INTRAVENOUS
     Route: 042
     Dates: start: 20010914, end: 20010916
  3. CYTARABINE [Suspect]
     Indication: ACUTE MYELOID LEUKAEMIA
     Dosage: 2.0 MG DAYS 2-6 (10 MG TOTAL), INTRAVENOUS
     Route: 042
     Dates: start: 20010915, end: 20010919
  4. MESNA [Suspect]
     Indication: ACUTE MYELOID LEUKAEMIA
     Dosage: 600 MG/M^2 PER DAY (3515 MG TOTAL), INTRAVENOUS
     Route: 042
     Dates: start: 20010901, end: 20010901
  5. TOPOTECAN (TOPOTECAN) [Suspect]
     Indication: ACUTE MYELOID LEUKAEMIA
     Dosage: 1.5 MG/M^2 DAYS 2-6 (14 MG TOTAL), INTRAVENOUS
     Route: 042
     Dates: start: 20010915, end: 20010919
  6. TOPOTECAN (TOPOTECAN) [Suspect]
     Indication: ACUTE MYELOID LEUKAEMIA
     Dosage: 1.5 MG/M^2 DAYS 2-6 (14 MG TOTAL), INTRAVENOUS
     Route: 042
     Dates: start: 20020313, end: 20020317
  7. BACTRIM [Concomitant]
  8. DIFLUCAN [Concomitant]
  9. LEVAQUIN [Concomitant]
  10. LASIX [Concomitant]
  11. IMDUR [Concomitant]
  12. PREDNISONE [Concomitant]
  13. PREVACID [Concomitant]

REACTIONS (7)
  - BRONCHOPULMONARY ASPERGILLOSIS [None]
  - DIVERTICULITIS [None]
  - ESCHERICHIA SEPSIS [None]
  - FEBRILE NEUTROPENIA [None]
  - GLYCOPEPTIDE ANTIBIOTIC RESISTANT ENTEROCOCCAL INFECTION [None]
  - HAEMOGLOBIN DECREASED [None]
  - PLATELET COUNT DECREASED [None]
